FAERS Safety Report 9989251 (Version 7)
Quarter: 2015Q1

REPORT INFORMATION
  Report Type: Spontaneous
  Country: JP (occurrence: JP)
  Receive Date: 20140310
  Receipt Date: 20150223
  Transmission Date: 20150721
  Serious: Yes (Death)
  Sender: FDA-Public Use
  Company Number: JP-ASTRAZENECA-2014SE16022

PATIENT
  Age: 2 Year
  Sex: Male

DRUGS (1)
  1. DIPRIVAN KIT [Suspect]
     Active Substance: PROPOFOL
     Indication: SEDATION
     Dosage: REFER TO THE NARRATIVE FIELD
     Route: 042
     Dates: start: 20140218, end: 20140221

REACTIONS (9)
  - Rhabdomyolysis [Fatal]
  - Chromaturia [Unknown]
  - Swelling face [Unknown]
  - Peripheral swelling [Unknown]
  - Product use issue [Unknown]
  - Overdose [Fatal]
  - Circulatory collapse [Fatal]
  - Propofol infusion syndrome [Fatal]
  - Eyelid oedema [Unknown]

NARRATIVE: CASE EVENT DATE: 201402
